FAERS Safety Report 9701769 (Version 1)
Quarter: 2013Q4

REPORT INFORMATION
  Report Type: Spontaneous
  Country: US (occurrence: None)
  Receive Date: 20131120
  Receipt Date: 20131120
  Transmission Date: 20140711
  Serious: Yes (Life-Threatening, Hospitalization, Other)
  Sender: FDA-Public Use
  Company Number: None

PATIENT
  Age: 31 Year
  Sex: Female

DRUGS (1)
  1. MIRENA IUD [Suspect]

REACTIONS (8)
  - Pregnancy with contraceptive device [None]
  - Device dislocation [None]
  - Exposure during pregnancy [None]
  - Abortion spontaneous [None]
  - Endometriosis [None]
  - Adenomyosis [None]
  - Rectal haemorrhage [None]
  - Uterine perforation [None]
